FAERS Safety Report 5602476-0 (Version None)
Quarter: 2008Q1

REPORT INFORMATION
  Report Type: 
  Country: None (occurrence: None)
  Receive Date: 20080125
  Receipt Date: 20080115
  Transmission Date: 20080703
  Serious: Yes (Hospitalization, Other)
  Sender: FDA-Public Use
  Company Number: US-ASTRAZENECA-2006UW23509

PATIENT
  Sex: Male
  Weight: 136.4 kg

DRUGS (45)
  1. SEROQUEL [Suspect]
     Indication: PSYCHOTIC DISORDER
     Dosage: 100 MG 1 TAB AM, 2 TAB HS
     Route: 048
     Dates: start: 20000621, end: 20000101
  2. SEROQUEL [Suspect]
     Dosage: 100 MG 1 TAB AM, 3 TAB HS
     Route: 048
     Dates: start: 20000816, end: 20000101
  3. SEROQUEL [Suspect]
     Route: 048
     Dates: start: 20001009
  4. SEROQUEL [Suspect]
     Route: 048
     Dates: start: 20010101
  5. SEROQUEL [Suspect]
     Route: 048
     Dates: start: 20010725
  6. SEROQUEL [Suspect]
     Route: 048
     Dates: start: 20020813
  7. SEROQUEL [Suspect]
     Route: 048
     Dates: start: 20021017
  8. SEROQUEL [Suspect]
     Route: 048
     Dates: start: 20021104
  9. SEROQUEL [Suspect]
     Dosage: 300 MG BID, 1 1/2 TAB HS
     Route: 048
     Dates: start: 20030414
  10. SEROQUEL [Suspect]
     Route: 048
     Dates: start: 20030530
  11. SEROQUEL [Suspect]
     Route: 048
     Dates: end: 20070501
  12. ABILIFY [Concomitant]
     Route: 048
     Dates: start: 20050115
  13. CLOZARIL [Concomitant]
  14. RISPERDAL [Concomitant]
  15. ZYPREXA [Concomitant]
     Route: 048
     Dates: start: 19990619, end: 20030101
  16. ZYPREXA [Concomitant]
     Dates: start: 20030530
  17. TRAZODONE HCL [Concomitant]
     Route: 048
     Dates: start: 19990601
  18. TRAZODONE HCL [Concomitant]
     Dosage: 1 TAB QAM, 3 TAB HS
     Dates: start: 20000601
  19. REMERON [Concomitant]
     Dates: start: 19990702
  20. REMERON [Concomitant]
     Dates: start: 20010426, end: 20050101
  21. ALTACE [Concomitant]
     Route: 048
     Dates: start: 20000501
  22. ALTACE [Concomitant]
     Route: 048
     Dates: start: 20050216
  23. DEPAKOTE [Concomitant]
     Route: 048
     Dates: start: 19990701, end: 20030101
  24. DEPAKOTE [Concomitant]
     Route: 048
     Dates: start: 20031216
  25. CLONAZEPAM [Concomitant]
     Dosage: 1 TAB BID, 2 TAB HS
     Route: 048
     Dates: start: 19991222
  26. CLONAZEPAM [Concomitant]
     Route: 048
     Dates: start: 20000124, end: 20000101
  27. CLONAZEPAM [Concomitant]
     Route: 048
     Dates: start: 20001110, end: 20000101
  28. PRILOSEC [Concomitant]
     Route: 048
     Dates: start: 20000808
  29. LORAZEPAM [Concomitant]
     Route: 048
     Dates: start: 20000619
  30. TRICAN [Concomitant]
     Route: 048
     Dates: start: 20000202
  31. ISOSORBIDE DINITRATE [Concomitant]
     Route: 048
     Dates: start: 20000419
  32. SYNTHROID [Concomitant]
     Dosage: 0.025 MG TO 0.088 MG
     Route: 048
     Dates: start: 20000313
  33. PROPRANOLOL [Concomitant]
     Indication: ANXIETY
     Route: 048
     Dates: start: 20000313
  34. REMERON [Concomitant]
     Route: 048
  35. MONOPRIL [Concomitant]
     Route: 048
     Dates: start: 20011025
  36. PROTONIX [Concomitant]
     Route: 048
     Dates: start: 20020315
  37. HYDROXYZINE PAMOATE [Concomitant]
     Indication: PANIC ATTACK
     Dosage: Q8H PRN
     Route: 048
     Dates: start: 20020506
  38. NEXIUM [Concomitant]
     Route: 048
     Dates: start: 20050223
  39. LEVOTHYROXINE SODIUM [Concomitant]
     Dosage: 0.150 MG TO 0.175 MG
     Route: 048
     Dates: start: 20041025
  40. AVANDIA [Concomitant]
     Route: 048
     Dates: start: 20041021
  41. GEODON [Concomitant]
     Dates: start: 20041022
  42. GLUCOPHAGE [Concomitant]
     Indication: DIABETES MELLITUS
     Route: 048
     Dates: start: 20000401
  43. GLUCOPHAGE [Concomitant]
     Route: 048
     Dates: start: 20000505, end: 20000101
  44. AMARYL [Concomitant]
     Indication: DIABETES MELLITUS
     Route: 048
     Dates: start: 20001121
  45. METFORMIN HCL [Concomitant]
     Indication: DIABETES MELLITUS
     Dates: start: 20041201

REACTIONS (15)
  - ASTHENIA [None]
  - CHEST PAIN [None]
  - DIPLOPIA [None]
  - DYSPHAGIA [None]
  - FALL [None]
  - FATTY LIVER ALCOHOLIC [None]
  - INTERVERTEBRAL DISC DISORDER [None]
  - NEUROPATHY PERIPHERAL [None]
  - PANCREATITIS [None]
  - POLYNEUROPATHY [None]
  - RESTLESS LEGS SYNDROME [None]
  - SPINAL OSTEOARTHRITIS [None]
  - TRAUMATIC BRAIN INJURY [None]
  - TYPE 2 DIABETES MELLITUS [None]
  - VISION BLURRED [None]
